FAERS Safety Report 23671626 (Version 1)
Quarter: 2024Q1

REPORT INFORMATION
  Report Type: Spontaneous
  Country: US (occurrence: US)
  Receive Date: 20240326
  Receipt Date: 20240326
  Transmission Date: 20240410
  Serious: No
  Sender: FDA-Public Use
  Company Number: US-DRL-USA-LIT/USA/24/0004522

PATIENT
  Age: 48 Year
  Sex: Female

DRUGS (5)
  1. CLONIDINE [Suspect]
     Active Substance: CLONIDINE
     Indication: Chronic tic disorder
  2. RISPERIDONE [Suspect]
     Active Substance: RISPERIDONE
     Indication: Chronic tic disorder
  3. TOPIRAMATE [Suspect]
     Active Substance: TOPIRAMATE
     Indication: Chronic tic disorder
  4. GUANFACINE [Suspect]
     Active Substance: GUANFACINE
     Indication: Chronic tic disorder
  5. HALOPERIDOL [Suspect]
     Active Substance: HALOPERIDOL
     Indication: Chronic tic disorder

REACTIONS (2)
  - Drug ineffective [Unknown]
  - Adverse event [Unknown]
